FAERS Safety Report 12276316 (Version 2)
Quarter: 2016Q2

REPORT INFORMATION
  Report Type: Spontaneous
  Country: FR (occurrence: FR)
  Receive Date: 20160418
  Receipt Date: 20160420
  Transmission Date: 20160815
  Serious: Yes (Hospitalization)
  Sender: FDA-Public Use
  Company Number: FR-JNJFOC-20160409354

PATIENT
  Age: 62 Year
  Sex: Male

DRUGS (4)
  1. ZELITREX [Concomitant]
     Active Substance: VALACYCLOVIR HYDROCHLORIDE
     Route: 065
  2. VELCADE [Suspect]
     Active Substance: BORTEZOMIB
     Indication: PLASMA CELL LEUKAEMIA
     Dosage: CYCLE 1, D1-D4-D8-D11
     Route: 042
     Dates: start: 20151009, end: 20160218
  3. CAELYX [Suspect]
     Active Substance: DOXORUBICIN HYDROCHLORIDE
     Indication: PLASMA CELL LEUKAEMIA
     Dosage: (D4) WITH COURSES EVERY THREE WEEKS, CYCLE 1 DAY 1
     Route: 042
     Dates: start: 20151103, end: 20160218
  4. INEXIUM [Concomitant]
     Active Substance: ESOMEPRAZOLE
     Route: 065

REACTIONS (4)
  - Thrombocytopenia [Recovered/Resolved]
  - Off label use [Unknown]
  - Interstitial lung disease [Recovering/Resolving]
  - Product use issue [Unknown]

NARRATIVE: CASE EVENT DATE: 20160226
